FAERS Safety Report 24339184 (Version 1)
Quarter: 2024Q3

REPORT INFORMATION
  Report Type: Spontaneous
  Country: US (occurrence: US)
  Receive Date: 20240919
  Receipt Date: 20240919
  Transmission Date: 20241016
  Serious: No
  Sender: BAYER
  Company Number: US-BAYER-2024A131042

PATIENT
  Sex: Female

DRUGS (3)
  1. MIRALAX [Suspect]
     Active Substance: POLYETHYLENE GLYCOL 3350
     Indication: Constipation
  2. IBRANCE [Suspect]
     Active Substance: PALBOCICLIB
     Dosage: 125 MG
  3. OZEMPIC [Suspect]
     Active Substance: SEMAGLUTIDE
     Indication: Diabetes mellitus

REACTIONS (1)
  - Drug ineffective [None]
